FAERS Safety Report 11090493 (Version 1)
Quarter: 2015Q2

REPORT INFORMATION
  Report Type: Spontaneous
  Country: US (occurrence: None)
  Receive Date: 20150504
  Receipt Date: 20150504
  Transmission Date: 20150821
  Serious: Yes (Hospitalization)
  Sender: FDA-Public Use
  Company Number: None

PATIENT
  Age: 45 Year
  Sex: Male
  Weight: 75.75 kg

DRUGS (17)
  1. AMPYRA [Concomitant]
     Active Substance: DALFAMPRIDINE
  2. HYDROXYZINE HCL [Concomitant]
     Active Substance: HYDROXYZINE HYDROCHLORIDE
  3. TEGADERM [Concomitant]
     Active Substance: 2-HYDROXYETHYL METHACRYLATE
  4. METHIMAZOLE. [Concomitant]
     Active Substance: METHIMAZOLE
  5. NUEDEXTA [Concomitant]
     Active Substance: DEXTROMETHORPHAN HYDROBROMIDE\QUINIDINE SULFATE
  6. SOLU-MEDROL [Suspect]
     Active Substance: METHYLPREDNISOLONE SODIUM SUCCINATE
     Route: 042
  7. ACYCLOVIR. [Concomitant]
     Active Substance: ACYCLOVIR
  8. CLONAZEPAM. [Concomitant]
     Active Substance: CLONAZEPAM
  9. EMLA [Concomitant]
     Active Substance: LIDOCAINE\PRILOCAINE
  10. TRAMADOL [Concomitant]
     Active Substance: TRAMADOL
  11. 5-HTP [Concomitant]
     Active Substance: OXITRIPTAN
  12. VESICARE [Concomitant]
     Active Substance: SOLIFENACIN SUCCINATE
  13. VITAMIN D [Concomitant]
     Active Substance: CHOLECALCIFEROL
  14. ALEMTUZUMAB [Suspect]
     Active Substance: ALEMTUZUMAB
     Indication: MULTIPLE SCLEROSIS
     Route: 042
  15. ALEMTUZUMAB [Concomitant]
     Active Substance: ALEMTUZUMAB
  16. BACLOFEN. [Concomitant]
     Active Substance: BACLOFEN
  17. GABAPENTIN. [Concomitant]
     Active Substance: GABAPENTIN

REACTIONS (4)
  - Muscular weakness [None]
  - Dysphonia [None]
  - Condition aggravated [None]
  - Basedow^s disease [None]

NARRATIVE: CASE EVENT DATE: 20150430
